FAERS Safety Report 11570090 (Version 1)
Quarter: 2015Q3

REPORT INFORMATION
  Report Type: Spontaneous
  Country: US (occurrence: US)
  Receive Date: 20150929
  Receipt Date: 20150929
  Transmission Date: 20151125
  Serious: No
  Sender: FDA-Public Use
  Company Number: US-PFIZER INC-2015313940

PATIENT
  Sex: Female

DRUGS (2)
  1. GABAPENTIN. [Suspect]
     Active Substance: GABAPENTIN
     Dosage: UNK
  2. CYMBALTA [Suspect]
     Active Substance: DULOXETINE HYDROCHLORIDE
     Dosage: UNK

REACTIONS (9)
  - Intervertebral disc protrusion [Unknown]
  - Pain [Unknown]
  - Restless legs syndrome [Unknown]
  - Hypoaesthesia [Recovering/Resolving]
  - Drug ineffective [Unknown]
  - Feeling abnormal [Unknown]
  - Pain in extremity [Unknown]
  - Paraesthesia [Recovering/Resolving]
  - Burning sensation [Unknown]
